FAERS Safety Report 12674971 (Version 1)
Quarter: 2016Q3

REPORT INFORMATION
  Report Type: Spontaneous
  Country: US (occurrence: US)
  Receive Date: 20160822
  Receipt Date: 20160822
  Transmission Date: 20161109
  Serious: No
  Sender: FDA-Public Use
  Company Number: US-LUNDBECK-DKLU2016248

PATIENT
  Age: 68 Year
  Sex: Female

DRUGS (1)
  1. NORTHERA [Suspect]
     Active Substance: DROXIDOPA
     Indication: PRODUCT USED FOR UNKNOWN INDICATION
     Dosage: SCHEDULE A
     Route: 065
     Dates: start: 20160630

REACTIONS (4)
  - Chromaturia [Unknown]
  - Diarrhoea [Unknown]
  - Cold sweat [Unknown]
  - Nausea [Unknown]

NARRATIVE: CASE EVENT DATE: 20160703
